FAERS Safety Report 6535062-9 (Version None)
Quarter: 2010Q1

REPORT INFORMATION
  Report Type: 
  Country: None (occurrence: None)
  Receive Date: 20100111
  Receipt Date: 20100111
  Transmission Date: 20100710
  Serious: No
  Sender: FDA-Public Use
  Company Number: None

PATIENT
  Age: 24 Year
  Sex: Female
  Weight: 90.7194 kg

DRUGS (1)
  1. TRI LO SPRINTEC [Suspect]
     Indication: PREGNANCY
     Dosage: 1 TBLET ONCE DAILY PO
     Route: 048
     Dates: start: 20090601, end: 20100101

REACTIONS (14)
  - ACNE [None]
  - AFFECTIVE DISORDER [None]
  - ANGER [None]
  - DEPRESSION [None]
  - HOT FLUSH [None]
  - HYPERHIDROSIS [None]
  - IRRITABILITY [None]
  - MALAISE [None]
  - METRORRHAGIA [None]
  - MIGRAINE [None]
  - MUSCLE SPASMS [None]
  - NAUSEA [None]
  - PARANOIA [None]
  - WITHDRAWAL SYNDROME [None]
